FAERS Safety Report 9659318 (Version 2)
Quarter: 2014Q2

REPORT INFORMATION
  Report Type: Spontaneous
  Country: US (occurrence: US)
  Receive Date: 20131031
  Receipt Date: 20140430
  Transmission Date: 20141212
  Serious: Yes (Other)
  Sender: FDA-Public Use
  Company Number: US-THROMBOGENICS INC-JET-2013-013

PATIENT
  Sex: 0

DRUGS (4)
  1. JETREA [Suspect]
     Indication: VITREOUS ADHESIONS
     Dosage: 0.125 MG, ONE TIME DOSE
     Route: 031
     Dates: start: 20130201, end: 20130201
  2. SYNTHROID [Concomitant]
     Indication: HYPOTHYROIDISM
     Dosage: 125 ?G, QD
  3. BUPROPION HCL [Concomitant]
     Dosage: 300 MG, QD
  4. ADVIL                              /00044201/ [Concomitant]
     Indication: ARTHRITIS
     Dosage: 600 MG, PRN

REACTIONS (7)
  - Pupillary reflex impaired [Recovered/Resolved]
  - Visual impairment [Not Recovered/Not Resolved]
  - Pupils unequal [Not Recovered/Not Resolved]
  - Photopsia [Not Recovered/Not Resolved]
  - Visual field defect [Not Recovered/Not Resolved]
  - Chromatopsia [Not Recovered/Not Resolved]
  - Vision blurred [Not Recovered/Not Resolved]
